FAERS Safety Report 20263158 (Version 1)
Quarter: 2021Q4

REPORT INFORMATION
  Report Type: Spontaneous
  Country: US (occurrence: US)
  Receive Date: 20211231
  Receipt Date: 20211231
  Transmission Date: 20220304
  Serious: No
  Sender: FDA-Public Use
  Company Number: US-CELGENE-USA-20211208731

PATIENT
  Sex: Female
  Weight: 81.720 kg

DRUGS (1)
  1. POMALYST [Suspect]
     Active Substance: POMALIDOMIDE
     Indication: Plasma cell myeloma
     Route: 048
     Dates: start: 20211201

REACTIONS (3)
  - Eye colour change [Not Recovered/Not Resolved]
  - Pigmentation lip [Not Recovered/Not Resolved]
  - Diarrhoea [Not Recovered/Not Resolved]
